FAERS Safety Report 21770544 (Version 1)
Quarter: 2022Q4

REPORT INFORMATION
  Report Type: Report from Study
  Country: US (occurrence: US)
  Receive Date: 20221223
  Receipt Date: 20221223
  Transmission Date: 20230113
  Serious: Yes (Other)
  Sender: FDA-Public Use
  Company Number: US-ABBVIE-20K-163-3650159-00

PATIENT
  Sex: Female

DRUGS (1)
  1. HUMIRA [Suspect]
     Active Substance: ADALIMUMAB
     Indication: Hidradenitis
     Dosage: CITRATE FREE?FORM STRENGTH- 80 MG
     Route: 058
     Dates: end: 20200918

REACTIONS (3)
  - Cerebrovascular accident [Unknown]
  - Device use error [Not Recovered/Not Resolved]
  - Atrial septal defect [Unknown]

NARRATIVE: CASE EVENT DATE: 20200101
